FAERS Safety Report 8455910-5 (Version None)
Quarter: 2012Q2

REPORT INFORMATION
  Report Type: 
  Country: None (occurrence: None)
  Receive Date: 20120621
  Receipt Date: 20120608
  Transmission Date: 20120825
  Serious: Yes (Other)
  Sender: FDA-Public Use
  Company Number: DE-FRI-1000031451

PATIENT
  Sex: Female

DRUGS (2)
  1. FOSFOMYCIN [Suspect]
     Indication: URINARY TRACT INFECTION
     Route: 048
     Dates: start: 20120604, end: 20120604
  2. MUCOSOLVAN [Suspect]
     Indication: COUGH
     Dates: start: 20120604, end: 20120604

REACTIONS (2)
  - DYSPNOEA [None]
  - HYPERSENSITIVITY [None]
